FAERS Safety Report 4382930-2 (Version None)
Quarter: 2004Q2

REPORT INFORMATION
  Report Type: 
  Country: None (occurrence: None)
  Receive Date: 20040603
  Receipt Date: 20040303
  Transmission Date: 20050107
  Serious: Yes (Hospitalization)
  Sender: FDA-Public Use
  Company Number: 200410362US

PATIENT
  Age: 80 Year
  Sex: Female
  Weight: 80 kg

DRUGS (23)
  1. LOVENOX [Suspect]
     Indication: DEEP VENOUS THROMBOSIS PROPHYLAXIS
     Dosage: 30 MG Q12H SC
     Route: 058
     Dates: end: 20040113
  2. ERGOCALCIFEROL [Concomitant]
  3. ASCORBIC ACID [Concomitant]
  4. FOLIC ACID [Concomitant]
  5. THIAMINE HCL [Concomitant]
  6. RETINOL [Concomitant]
  7. RIBOFLAVIN TAB [Concomitant]
  8. NICOTINAMIDE [Concomitant]
  9. PANTHENOL (MULTIVITAMINS) [Concomitant]
  10. CEFAZOLIN [Concomitant]
  11. METOCLOPRAMIDE [Concomitant]
  12. DOCUSATE SODIUM [Concomitant]
  13. ATENOLOL [Concomitant]
  14. TRIHEXYPHENIDYL HCL [Concomitant]
  15. FLUPHENAZINE [Concomitant]
  16. TEMAZEPAM [Concomitant]
  17. FUROSEMIDE [Concomitant]
  18. FERROUS SULFATE TAB [Concomitant]
  19. ACETAMINOPHEN [Concomitant]
  20. ACETAMINOPHEN [Concomitant]
  21. OXYCODONE HYDROCHLORIDE (ACETAMINOPHEN W/OXYCODONE) [Concomitant]
  22. FENTANYL [Concomitant]
  23. MORPHINE [Concomitant]

REACTIONS (1)
  - DEEP VEIN THROMBOSIS [None]
